FAERS Safety Report 5672499-4 (Version None)
Quarter: 2008Q1

REPORT INFORMATION
  Report Type: 
  Country: None (occurrence: None)
  Receive Date: 20080318
  Receipt Date: 20080318
  Transmission Date: 20080703
  Serious: No
  Sender: FDA-Public Use
  Company Number: None

PATIENT
  Age: 60 Year
  Sex: Male
  Weight: 89.9 kg

DRUGS (1)
  1. VARENICLINE 1MG TABLET [Suspect]
     Indication: SMOKING CESSATION THERAPY
     Dosage: PO
     Route: 048
     Dates: start: 20070806

REACTIONS (2)
  - ABDOMINAL PAIN UPPER [None]
  - NIGHTMARE [None]
